FAERS Safety Report 24993186 (Version 1)
Quarter: 2025Q1

REPORT INFORMATION
  Report Type: Spontaneous
  Country: FR (occurrence: FR)
  Receive Date: 20250221
  Receipt Date: 20250221
  Transmission Date: 20250409
  Serious: Yes (Other)
  Sender: NOVO NORDISK
  Company Number: FR-NOVOPROD-1371590

PATIENT
  Age: 46 Year
  Sex: Female
  Weight: 56 kg

DRUGS (2)
  1. WEGOVY [Suspect]
     Active Substance: SEMAGLUTIDE
     Indication: Product used for unknown indication
     Dates: start: 20241110
  2. WEGOVY [Suspect]
     Active Substance: SEMAGLUTIDE
     Dates: end: 20250210

REACTIONS (1)
  - White blood cell count decreased [Unknown]
